FAERS Safety Report 7798286-9 (Version None)
Quarter: 2011Q4

REPORT INFORMATION
  Report Type: 
  Country: None (occurrence: None)
  Receive Date: 20111005
  Receipt Date: 20110922
  Transmission Date: 20120403
  Serious: Yes (Hospitalization)
  Sender: FDA-Public Use
  Company Number: PHHY2011DE80652

PATIENT
  Sex: Female

DRUGS (6)
  1. NEXIUM [Concomitant]
     Dosage: 1 DF, QD
     Route: 048
  2. TORSEMIDE [Concomitant]
     Dosage: 1 DF, QD
     Route: 048
  3. DIOVAN [Suspect]
     Indication: HYPERTENSION
     Dosage: 1 DF, QD (80 MG)
     Route: 048
     Dates: start: 20010101
  4. FLUVASTATIN SODIUM [Suspect]
     Dosage: 1 DF, QD
     Route: 048
  5. LERCANIDIPINE [Concomitant]
     Dosage: 0.5 DF, QD
     Route: 048
  6. METOPROLOL TARTRATE [Concomitant]
     Dosage: 0.5 DF, QD
     Route: 048

REACTIONS (6)
  - SLEEP DISORDER [None]
  - DRUG INEFFECTIVE [None]
  - DYSPNOEA [None]
  - BLOOD PRESSURE INCREASED [None]
  - INTESTINAL PERFORATION [None]
  - POLYP COLORECTAL [None]
